FAERS Safety Report 20231062 (Version 15)
Quarter: 2024Q4

REPORT INFORMATION
  Report Type: Report from Study
  Country: ES (occurrence: ES)
  Receive Date: 20211227
  Receipt Date: 20241127
  Transmission Date: 20250114
  Serious: No
  Sender: ROCHE
  Company Number: ES-ROCHE-2981147

PATIENT
  Age: 48 Year
  Sex: Male

DRUGS (16)
  1. OCRELIZUMAB [Suspect]
     Active Substance: OCRELIZUMAB
     Indication: Relapsing-remitting multiple sclerosis
     Route: 042
     Dates: start: 20200212, end: 20200212
  2. OCRELIZUMAB [Suspect]
     Active Substance: OCRELIZUMAB
     Dosage: TOTAL VOLUME ADMINISTERED 500 ML
     Route: 042
     Dates: start: 20221128, end: 20221128
  3. OCRELIZUMAB [Suspect]
     Active Substance: OCRELIZUMAB
     Dosage: TOTAL VOLUME ADMINISTERED 500 ML
     Route: 042
     Dates: start: 20211019, end: 20211019
  4. OCRELIZUMAB [Suspect]
     Active Substance: OCRELIZUMAB
     Dosage: TOTAL VOLUME ADMINISTERED 500 ML
     Route: 042
     Dates: start: 20200908, end: 20200908
  5. OCRELIZUMAB [Suspect]
     Active Substance: OCRELIZUMAB
     Dosage: TOTAL VOLUME ADMINISTERED 500 ML
     Route: 042
     Dates: start: 20220520, end: 20220520
  6. OCRELIZUMAB [Suspect]
     Active Substance: OCRELIZUMAB
     Dosage: TOTAL VOLUME ADMINISTERED 250 ML
     Route: 042
     Dates: start: 20200227, end: 20200227
  7. OCRELIZUMAB [Suspect]
     Active Substance: OCRELIZUMAB
     Dosage: TOTAL VOLUME ADMINISTERED 500 ML
     Route: 042
     Dates: start: 20210421, end: 20210421
  8. OCRELIZUMAB [Suspect]
     Active Substance: OCRELIZUMAB
     Dosage: NEXT DOSE: 08/JAN/2024 (500 ML)
     Route: 042
     Dates: start: 20230706, end: 20230706
  9. OCRELIZUMAB [Suspect]
     Active Substance: OCRELIZUMAB
     Dosage: NEXT DOSE: 08/JAN/2024 (500 ML)
     Route: 042
     Dates: start: 20240715, end: 20240715
  10. OCRELIZUMAB [Suspect]
     Active Substance: OCRELIZUMAB
     Dosage: NEXT DOSE: 08/JAN/2024 (500 ML)
     Route: 042
     Dates: start: 20240108, end: 20240108
  11. AZITHROMYCIN [Concomitant]
     Active Substance: AZITHROMYCIN
     Route: 048
     Dates: start: 20221018, end: 20221020
  12. POLARAMINE [Concomitant]
     Active Substance: DEXCHLORPHENIRAMINE MALEATE
     Dosage: NEXT DOSE: 08/JAN/2024? FREQUENCY TEXT:ONCE BEFORE INFUSION
     Route: 048
     Dates: start: 20240715, end: 20240715
  13. POLARAMINE [Concomitant]
     Active Substance: DEXCHLORPHENIRAMINE MALEATE
     Dosage: NEXT DOSE: 08/JAN/2024? FREQUENCY TEXT:ONCE BEFORE INFUSION
     Route: 048
     Dates: start: 20240108, end: 20240108
  14. POLARAMINE [Concomitant]
     Active Substance: DEXCHLORPHENIRAMINE MALEATE
     Dosage: NEXT DOSE: 08/JAN/2024? FREQUENCY TEXT:ONCE BEFORE INFUSION
     Route: 048
     Dates: start: 20240715, end: 20240715
  15. METHYLPREDNISOLONE [Concomitant]
     Active Substance: METHYLPREDNISOLONE
     Dosage: FREQUENCY TEXT:ONCE BEFORE INFUSION
     Route: 042
     Dates: start: 20230705, end: 20230706
  16. METHYLPREDNISOLONE [Concomitant]
     Active Substance: METHYLPREDNISOLONE
     Dosage: ONCE BEFORE INFUSION
     Route: 042
     Dates: start: 20240108, end: 20240108

REACTIONS (3)
  - COVID-19 [Recovered/Resolved]
  - Pharyngitis [Recovering/Resolving]
  - Alcoholism [Recovering/Resolving]

NARRATIVE: CASE EVENT DATE: 20211213
